FAERS Safety Report 6986256-X (Version None)
Quarter: 2010Q3

REPORT INFORMATION
  Report Type: 
  Country: None (occurrence: None)
  Receive Date: 20100915
  Receipt Date: 20090611
  Transmission Date: 20110219
  Serious: No
  Sender: FDA-Public Use
  Company Number: US-WYE-H09727209

PATIENT
  Sex: Female
  Weight: 86.26 kg

DRUGS (1)
  1. PRISTIQ [Suspect]
     Indication: PREMENSTRUAL SYNDROME
     Route: 048
     Dates: start: 20090501, end: 20090608

REACTIONS (6)
  - ANGER [None]
  - DIZZINESS [None]
  - DRUG WITHDRAWAL SYNDROME [None]
  - FEELING HOT [None]
  - HEADACHE [None]
  - INSOMNIA [None]
